FAERS Safety Report 8356742-9 (Version None)
Quarter: 2012Q2

REPORT INFORMATION
  Report Type: 
  Country: None (occurrence: None)
  Receive Date: 20120514
  Receipt Date: 20120504
  Transmission Date: 20120825
  Serious: Yes (Other)
  Sender: FDA-Public Use
  Company Number: BR-CUBIST-2012S1000422

PATIENT
  Age: 60 Year
  Sex: Male

DRUGS (4)
  1. CUBICIN [Suspect]
     Route: 042
  2. CUBICIN [Suspect]
     Indication: OSTEOMYELITIS
     Route: 042
  3. VANCOMYCIN [Suspect]
     Indication: OSTEOMYELITIS
     Dosage: DOSE UNIT:U
  4. CEFEPIME [Suspect]
     Indication: OSTEOMYELITIS
     Dosage: DOSE UNIT:U

REACTIONS (2)
  - NEPHROTIC SYNDROME [None]
  - RENAL FAILURE [None]
